FAERS Safety Report 8512984-0 (Version None)
Quarter: 2012Q3

REPORT INFORMATION
  Report Type: 
  Country: None (occurrence: None)
  Receive Date: 20120716
  Receipt Date: 20120709
  Transmission Date: 20120928
  Serious: Yes (Hospitalization)
  Sender: FDA-Public Use
  Company Number: US-US-EMD SERONO, INC.-233038J10USA

PATIENT
  Sex: Female

DRUGS (3)
  1. UNSPECIFIED DEPRESSION MEDICATION [Concomitant]
     Indication: DEPRESSION
  2. REBIF [Suspect]
     Route: 058
  3. REBIF [Suspect]
     Indication: MULTIPLE SCLEROSIS
     Route: 058
     Dates: start: 20090303

REACTIONS (4)
  - BACTERIAL INFECTION [None]
  - GASTRITIS [None]
  - URINARY TRACT INFECTION [None]
  - STAPHYLOCOCCAL INFECTION [None]
